FAERS Safety Report 4744310-7 (Version None)
Quarter: 2005Q3

REPORT INFORMATION
  Report Type: 
  Country: None (occurrence: None)
  Receive Date: 20050812
  Receipt Date: 20050309
  Transmission Date: 20060218
  Serious: Yes (Death)
  Sender: FDA-Public Use
  Company Number: US-MERCK-0503USA02095

PATIENT
  Age: 68 Year
  Sex: Male
  Weight: 81 kg

DRUGS (7)
  1. VIOXX [Suspect]
     Indication: ARTHRITIS
     Route: 048
     Dates: start: 20020501, end: 20040906
  2. TRICOR [Concomitant]
     Route: 065
     Dates: start: 20020101
  3. LIPITOR [Concomitant]
     Route: 065
     Dates: start: 20020101
  4. CELEXA [Concomitant]
     Route: 065
  5. PEPCID [Concomitant]
     Indication: DYSPEPSIA
     Route: 048
  6. CARBIDOPA AND LEVODOPA [Concomitant]
     Route: 048
  7. AGGRENOX [Concomitant]
     Route: 065

REACTIONS (3)
  - BLOOD CHOLESTEROL INCREASED [None]
  - GASTROOESOPHAGEAL REFLUX DISEASE [None]
  - MYOCARDIAL INFARCTION [None]
